FAERS Safety Report 25932465 (Version 1)
Quarter: 2025Q4

REPORT INFORMATION
  Report Type: Spontaneous
  Country: JP (occurrence: JP)
  Receive Date: 20251017
  Receipt Date: 20251017
  Transmission Date: 20260118
  Serious: Yes (Other)
  Sender: Vantive US Healthcare
  Company Number: JP-VANTIVE-2025VAN004451

PATIENT
  Sex: Female

DRUGS (1)
  1. REGUNEAL LCA [Suspect]
     Active Substance: CALCIUM CHLORIDE\DEXTROSE MONOHYDRATE\HYDROCHLORIC ACID\MAGNESIUM CHLORIDE\SODIUM BICARBONATE\SODIUM
     Indication: End stage renal disease
     Dosage: 2500 ML
     Route: 033
     Dates: start: 20220506

REACTIONS (1)
  - Bloody peritoneal effluent [Recovered/Resolved]

NARRATIVE: CASE EVENT DATE: 20250924
